FAERS Safety Report 24023275 (Version 1)
Quarter: 2024Q2

REPORT INFORMATION
  Report Type: Spontaneous
  Country: JO (occurrence: JO)
  Receive Date: 20240627
  Receipt Date: 20240627
  Transmission Date: 20240716
  Serious: No
  Sender: FDA-Public Use
  Company Number: JO-ROCHE-3566966

PATIENT
  Age: 55 Year
  Sex: Male

DRUGS (1)
  1. VABYSMO [Suspect]
     Active Substance: FARICIMAB\FARICIMAB-SVOA
     Indication: Neovascular age-related macular degeneration
     Route: 065

REACTIONS (2)
  - Corneal oedema [Recovered/Resolved]
  - Intraocular pressure increased [Recovered/Resolved]
